FAERS Safety Report 8901734 (Version 1)
Quarter: 2012Q4

REPORT INFORMATION
  Report Type: Spontaneous
  Country: US (occurrence: None)
  Receive Date: 20121105
  Receipt Date: 20121105
  Transmission Date: 20130627
  Serious: Yes (Other)
  Sender: FDA-Public Use
  Company Number: E2B_00000444

PATIENT
  Age: 60 Year
  Sex: Male
  Weight: 59 kg

DRUGS (1)
  1. LEVETIRACETAM [Suspect]
     Indication: SEIZURES
     Dosage: (500 mg, 2 in 1 D)
     Route: 048
     Dates: start: 20121009

REACTIONS (6)
  - Anxiety [None]
  - Agitation [None]
  - Restlessness [None]
  - Mood altered [None]
  - Depression [None]
  - Impulsive behaviour [None]
